FAERS Safety Report 12967768 (Version 1)
Quarter: 2016Q4

REPORT INFORMATION
  Report Type: Spontaneous
  Country: US (occurrence: US)
  Receive Date: 20161122
  Receipt Date: 20161122
  Transmission Date: 20170207
  Serious: Yes (Hospitalization, Disabling, Other)
  Sender: FDA-Public Use
  Company Number: None

PATIENT
  Age: 14 Year
  Sex: Female
  Weight: 72 kg

DRUGS (2)
  1. MAGNEVIST [Suspect]
     Active Substance: GADOPENTETATE DIMEGLUMINE
     Indication: NUCLEAR MAGNETIC RESONANCE IMAGING
     Dosage: ?          OTHER STRENGTH:CC;OTHER ROUTE:INJECTED JOINT CAPSULE?
     Dates: start: 20160928
  2. OMNIPAQUE [Suspect]
     Active Substance: IOHEXOL
     Indication: NUCLEAR MAGNETIC RESONANCE IMAGING
     Dosage: ?          OTHER STRENGTH:CC;OTHER ROUTE:INJECTED JOINT CAPSULE?
     Dates: start: 20160928

REACTIONS (4)
  - Drug ineffective [None]
  - Seizure [None]
  - Malaise [None]
  - Respiratory arrest [None]

NARRATIVE: CASE EVENT DATE: 20160928
